FAERS Safety Report 9352207 (Version 1)
Quarter: 2013Q2

REPORT INFORMATION
  Report Type: Spontaneous
  Country: DE (occurrence: None)
  Receive Date: 20130612
  Receipt Date: 20130612
  Transmission Date: 20140414
  Serious: Yes (Life-Threatening, Hospitalization)
  Sender: FDA-Public Use
  Company Number: TPA2013A04845

PATIENT
  Age: 79 Year
  Sex: Male

DRUGS (5)
  1. ANENURIC [Suspect]
     Indication: HYPERURICAEMIA
     Dosage: 1 D
     Route: 048
     Dates: start: 20130223, end: 20130415
  2. AZATHIOPRINE [Suspect]
     Dosage: 25 MG, 3 IN 1 D
     Dates: start: 20110923, end: 20130415
  3. FUROSEMIDE [Concomitant]
  4. CITALOPRAM [Concomitant]
  5. DECORTIN [Concomitant]

REACTIONS (2)
  - Drug interaction [None]
  - Pancytopenia [None]
